FAERS Safety Report 20388914 (Version 1)
Quarter: 2022Q1

REPORT INFORMATION
  Report Type: Other
  Country: US (occurrence: US)
  Receive Date: 20220128
  Receipt Date: 20220128
  Transmission Date: 20220423
  Serious: No
  Sender: FDA-Public Use
  Company Number: US-NEUROCRINE BIOSCIENCES INC.-2022NBI00343

PATIENT

DRUGS (4)
  1. INGREZZA [Suspect]
     Active Substance: VALBENAZINE
     Indication: Tardive dyskinesia
     Dosage: 40 MILLIGRAM, QD
     Route: 048
     Dates: start: 20211224, end: 20220114
  2. CLOZAPINE [Concomitant]
     Active Substance: CLOZAPINE
     Dosage: UNK
  3. HALDOL [Concomitant]
     Active Substance: HALOPERIDOL
     Dosage: UNK
  4. FLUOXETINE [Concomitant]
     Active Substance: FLUOXETINE HYDROCHLORIDE
     Dosage: UNK

REACTIONS (3)
  - Suicidal ideation [Recovered/Resolved]
  - Depression [Recovered/Resolved]
  - Diarrhoea [Unknown]
